FAERS Safety Report 4723977-3 (Version None)
Quarter: 2005Q3

REPORT INFORMATION
  Report Type: 
  Country: None (occurrence: None)
  Receive Date: 20050725
  Receipt Date: 20050715
  Transmission Date: 20060218
  Serious: Yes (Other)
  Sender: FDA-Public Use
  Company Number: CH-ABBOTT-05P-151-0305904-00

PATIENT
  Age: 24 Year
  Sex: Female

DRUGS (4)
  1. BIAXIN [Suspect]
     Indication: PNEUMONIA VIRAL
     Route: 048
     Dates: start: 20040205, end: 20040214
  2. CLAVULIN [Suspect]
     Indication: PNEUMONIA VIRAL
     Route: 048
     Dates: start: 20040205, end: 20040214
  3. FLUVOXAMINE [Suspect]
     Indication: DEPRESSION
  4. CLONAZEPAM [Suspect]
     Indication: DEPRESSION

REACTIONS (1)
  - ABORTION SPONTANEOUS [None]
